FAERS Safety Report 4521286-9 (Version None)
Quarter: 2004Q4

REPORT INFORMATION
  Report Type: 
  Country: None (occurrence: None)
  Receive Date: 20041208
  Receipt Date: 20041203
  Transmission Date: 20050328
  Serious: Yes (Death, Life-Threatening)
  Sender: FDA-Public Use
  Company Number: FR-GLAXOSMITHKLINE-B0359079A

PATIENT
  Age: 56 Year
  Sex: Female

DRUGS (13)
  1. AUGMENTIN '125' [Suspect]
     Dosage: 3G PER DAY
     Route: 042
     Dates: start: 20041020, end: 20041028
  2. DEBRIDAT [Suspect]
     Dosage: 6UNIT PER DAY
     Route: 042
     Dates: start: 20041028, end: 20041103
  3. NORADRENALINE [Suspect]
     Route: 065
     Dates: start: 20041020, end: 20041030
  4. PRIMPERAN [Suspect]
     Dosage: 3UNIT PER DAY
     Route: 042
     Dates: start: 20041028, end: 20041102
  5. SOLUDACTONE [Suspect]
     Dosage: 200MG PER DAY
     Route: 042
     Dates: start: 20041028, end: 20041031
  6. SURBRONC [Suspect]
     Route: 065
     Dates: start: 20041028, end: 20041103
  7. ROCEPHIN [Suspect]
     Indication: ENTEROBACTER INFECTION
     Dosage: 2G PER DAY
     Route: 042
     Dates: start: 20041029, end: 20041103
  8. CIFLOX [Suspect]
     Indication: ENTEROBACTER INFECTION
     Dosage: 400MG THREE TIMES PER DAY
     Route: 042
     Dates: start: 20041029, end: 20041103
  9. LASILIX [Suspect]
     Route: 042
     Dates: start: 20041029, end: 20041101
  10. INSULIN [Suspect]
     Route: 042
     Dates: start: 20041029, end: 20041103
  11. HYPNOVEL [Concomitant]
     Route: 065
  12. FENTANYL [Concomitant]
     Route: 065
  13. EPHEDRINE SUL CAP [Concomitant]
     Route: 065

REACTIONS (8)
  - ASCITES [None]
  - C-REACTIVE PROTEIN INCREASED [None]
  - ENTEROBACTER INFECTION [None]
  - HYPERBILIRUBINAEMIA [None]
  - JAUNDICE [None]
  - LIVER DISORDER [None]
  - PYREXIA [None]
  - THROMBOCYTOPENIA [None]
